FAERS Safety Report 24364353 (Version 2)
Quarter: 2024Q4

REPORT INFORMATION
  Report Type: Report from Study
  Country: NL (occurrence: NL)
  Receive Date: 20240926
  Receipt Date: 20241022
  Transmission Date: 20250114
  Serious: Yes (Hospitalization)
  Sender: ABBVIE
  Company Number: NL-ABBVIE-5933727

PATIENT
  Age: 64 Year
  Sex: Female

DRUGS (7)
  1. CARBIDOPA\LEVODOPA [Suspect]
     Active Substance: CARBIDOPA\LEVODOPA
     Indication: Parkinson^s disease
     Dosage: MD:4.0ML, CD:2.0ML/H, ED:0.0ML,  REMAINS AT 24 HOURS
     Route: 050
     Dates: start: 20230711, end: 20230901
  2. CARBIDOPA\LEVODOPA [Suspect]
     Active Substance: CARBIDOPA\LEVODOPA
     Dosage: MD:4.0ML, CD:2.0ML/H, ED:0.20ML,  REMAINS AT 24 HOURS
     Route: 050
     Dates: start: 20231207
  3. CARBIDOPA\LEVODOPA [Suspect]
     Active Substance: CARBIDOPA\LEVODOPA
     Dosage: MD:4.0ML; CD:2.0ML/H; ED;0.20ML; CND:2.0ML/H
     Route: 050
     Dates: start: 20240405, end: 20241016
  4. CARBIDOPA\LEVODOPA [Suspect]
     Active Substance: CARBIDOPA\LEVODOPA
     Dosage: MD:4.0ML, CD:2.0ML/H, ED:0.10ML,  REMAINS AT 24 HOURS
     Route: 050
     Dates: start: 20231110, end: 20231207
  5. CARBIDOPA\LEVODOPA [Suspect]
     Active Substance: CARBIDOPA\LEVODOPA
     Dosage: MD:4.0ML, CD:2.0ML/H, ED:0.0ML,  REMAINS AT 24 HOURS
     Route: 050
     Dates: start: 20230901, end: 20231110
  6. CARBIDOPA\LEVODOPA [Suspect]
     Active Substance: CARBIDOPA\LEVODOPA
     Dosage: REMAINS AT 16 HOURS
     Route: 050
     Dates: start: 20141211
  7. CARBIDOPA\LEVODOPA [Suspect]
     Active Substance: CARBIDOPA\LEVODOPA
     Dosage: MD:4.0ML; CD:2.0ML/H; ED;0.20ML; CND:2.0ML/H REMAINS AT 24 HOURS
     Route: 050
     Dates: start: 20241016

REACTIONS (14)
  - Deep brain stimulation [Not Recovered/Not Resolved]
  - Facial spasm [Not Recovered/Not Resolved]
  - Stoma site erythema [Not Recovered/Not Resolved]
  - Device breakage [Not Recovered/Not Resolved]
  - Therapeutic product effect incomplete [Not Recovered/Not Resolved]
  - Muscle rigidity [Unknown]
  - On and off phenomenon [Not Recovered/Not Resolved]
  - Anxiety disorder [Not Recovered/Not Resolved]
  - Hallucination [Not Recovered/Not Resolved]
  - Dyskinesia [Not Recovered/Not Resolved]
  - Insomnia [Unknown]
  - Weight increased [Not Recovered/Not Resolved]
  - Tremor [Not Recovered/Not Resolved]
  - Autophobia [Unknown]

NARRATIVE: CASE EVENT DATE: 20240101
